FAERS Safety Report 7807224-1 (Version None)
Quarter: 2011Q4

REPORT INFORMATION
  Report Type: 
  Country: None (occurrence: None)
  Receive Date: 20111011
  Receipt Date: 20111004
  Transmission Date: 20120403
  Serious: Yes (Life-Threatening, Hospitalization, Other)
  Sender: FDA-Public Use
  Company Number: AE-NAPPMUNDI-DEU-2011-0007887

PATIENT
  Age: 35 Year
  Sex: Female

DRUGS (15)
  1. VITAMINS                           /90003601/ [Concomitant]
     Indication: PRODUCT USED FOR UNKNOWN INDICATION
  2. PROSTAGLANDIN F2 ALPHA [Concomitant]
     Indication: UTERINE HYPOTONUS
  3. SODIUM CITRATE [Concomitant]
     Dosage: 30 ML, SINGLE
  4. CRYSTALLOIDS [Concomitant]
     Indication: HAEMORRHAGE
  5. PREDNISOLONE [Suspect]
     Indication: PRODUCT USED FOR UNKNOWN INDICATION
     Dosage: 10 MG, DAILY
  6. METHERGINE [Concomitant]
     Indication: UTERINE HYPOTONUS
  7. ANTIBIOTICS [Concomitant]
     Indication: PROPHYLAXIS
  8. ENOXAPARIN [Concomitant]
     Indication: PRODUCT USED FOR UNKNOWN INDICATION
     Dosage: 40 MG, DAILY
  9. H2 BLOCKER                         /00397402/ [Concomitant]
     Indication: PROPHYLAXIS
  10. FENTANYL [Concomitant]
     Indication: PRODUCT USED FOR UNKNOWN INDICATION
  11. COLLOIDS [Concomitant]
     Indication: HAEMORRHAGE
  12. OXYTOCIN [Suspect]
     Indication: PRODUCT USED FOR UNKNOWN INDICATION
  13. ANTIEMETICS AND ANTINAUSEANTS [Concomitant]
     Indication: PRODUCT USED FOR UNKNOWN INDICATION
  14. MORPHINE SULFATE [Suspect]
     Indication: POSTOPERATIVE ANALGESIA
     Dosage: UNK
  15. ASPIRIN [Concomitant]
     Indication: PRODUCT USED FOR UNKNOWN INDICATION

REACTIONS (3)
  - LARGE INTESTINE PERFORATION [None]
  - INFECTIOUS PERITONITIS [None]
  - COLONIC PSEUDO-OBSTRUCTION [None]
